FAERS Safety Report 8562450-1 (Version None)
Quarter: 2012Q3

REPORT INFORMATION
  Report Type: 
  Country: None (occurrence: None)
  Receive Date: 20120802
  Receipt Date: 20120711
  Transmission Date: 20120928
  Serious: No
  Sender: FDA-Public Use
  Company Number: US-AMGEN-USASP2012017143

PATIENT
  Age: 41 Year
  Sex: Male

DRUGS (2)
  1. ENBREL [Suspect]
     Indication: RHEUMATOID ARTHRITIS
     Dosage: 50 MG, QWK
     Dates: start: 20120125, end: 20120401
  2. CIMZIA [Concomitant]

REACTIONS (9)
  - MALAISE [None]
  - MOBILITY DECREASED [None]
  - NAUSEA [None]
  - OEDEMA PERIPHERAL [None]
  - MUSCULOSKELETAL STIFFNESS [None]
  - PRURITUS [None]
  - PAIN IN EXTREMITY [None]
  - HYPOAESTHESIA [None]
  - VOMITING [None]
